FAERS Safety Report 17601738 (Version 2)
Quarter: 2020Q2

REPORT INFORMATION
  Report Type: Report from Study
  Country: DE (occurrence: DE)
  Receive Date: 20200330
  Receipt Date: 20200424
  Transmission Date: 20200713
  Serious: Yes (Death, Hospitalization)
  Sender: FDA-Public Use
  Company Number: DE-JNJFOC-20200301305

PATIENT
  Age: 82 Year
  Sex: Male
  Weight: 79 kg

DRUGS (13)
  1. METOPROLOL. [Concomitant]
     Active Substance: METOPROLOL
     Dosage: 95 MG, BID
     Dates: start: 2018
  2. SIMVASTATIN. [Concomitant]
     Active Substance: SIMVASTATIN
     Dosage: 30 MG, QD
     Dates: start: 2018
  3. URSODEOXYCHOLIC ACID [Concomitant]
     Active Substance: URSODIOL
     Dosage: 250 MG, QD
     Dates: start: 2015
  4. RIVAROXABAN [Suspect]
     Active Substance: RIVAROXABAN
     Indication: CORONARY ARTERY DISEASE
     Dosage: 2.5 MG, BID
     Route: 048
     Dates: start: 20191118, end: 20191228
  5. ASA [Suspect]
     Active Substance: ASPIRIN
     Indication: CORONARY ARTERY DISEASE
  6. TORASEMID [Concomitant]
     Active Substance: TORSEMIDE
     Dosage: 10 MG, BID
     Dates: start: 201910
  7. ASA [Suspect]
     Active Substance: ASPIRIN
     Indication: PERIPHERAL ARTERIAL OCCLUSIVE DISEASE
  8. AMLODIPINE [Concomitant]
     Active Substance: AMLODIPINE BESYLATE
     Dosage: 5 MG, QD
     Dates: start: 2018
  9. LINEZOLID. [Concomitant]
     Active Substance: LINEZOLID
     Dosage: UNK
     Dates: start: 20191126, end: 20191127
  10. RIVAROXABAN [Suspect]
     Active Substance: RIVAROXABAN
     Indication: CARDIOVASCULAR EVENT PROPHYLAXIS
     Dosage: 2.5 MG, BID
     Route: 048
     Dates: start: 20190903, end: 20191106
  11. RIVAROXABAN [Suspect]
     Active Substance: RIVAROXABAN
     Indication: PERIPHERAL ARTERIAL OCCLUSIVE DISEASE
  12. ASA [Suspect]
     Active Substance: ASPIRIN
     Indication: CARDIOVASCULAR EVENT PROPHYLAXIS
     Dosage: 100 MG, QD
     Route: 065
     Dates: start: 2005
  13. GENTAMICIN. [Concomitant]
     Active Substance: GENTAMICIN
     Dosage: UNK
     Dates: start: 20191231

REACTIONS (2)
  - Respiratory failure [Fatal]
  - Oesophageal perforation [Recovered/Resolved with Sequelae]

NARRATIVE: CASE EVENT DATE: 20200106
